FAERS Safety Report 17235200 (Version 1)
Quarter: 2020Q1

REPORT INFORMATION
  Report Type: Spontaneous
  Country: FR (occurrence: FR)
  Receive Date: 20200106
  Receipt Date: 20200106
  Transmission Date: 20200409
  Serious: Yes (Hospitalization, Other)
  Sender: FDA-Public Use
  Company Number: FR-TEVA-2019-FR-1162599

PATIENT
  Age: 51 Year
  Sex: Male

DRUGS (4)
  1. RELPAX [Suspect]
     Active Substance: ELETRIPTAN HYDROBROMIDE
     Indication: HEADACHE
     Dosage: 1 DOSAGE FORMS, AS REQUIRED
     Dates: start: 2016
  2. KETOPROFENE [Suspect]
     Active Substance: KETOPROFEN
     Indication: HEADACHE
     Dosage: 1 DOSAGE FORMS, AS REQUIRED
     Route: 065
     Dates: start: 2016
  3. ACUPAN [Suspect]
     Active Substance: NEFOPAM HYDROCHLORIDE
     Indication: HEADACHE
     Dosage: 1 DOSAGE FORMS PER DAY
     Route: 030
     Dates: start: 2016
  4. PRONTALGINE (AMOBARBITAL\CAFFEINE\CODEINE PHOSPHATE\PARACETAMOL) [Suspect]
     Active Substance: ACETAMINOPHEN\AMOBARBITAL\CAFFEINE\CODEINE PHOSPHATE
     Indication: HEADACHE
     Dosage: 1 DOSAGE FORMS, AS REQUIRED
     Route: 048
     Dates: start: 2017

REACTIONS (3)
  - Drug dependence [Not Recovered/Not Resolved]
  - Medication overuse headache [Not Recovered/Not Resolved]
  - Condition aggravated [Not Recovered/Not Resolved]

NARRATIVE: CASE EVENT DATE: 2017
